FAERS Safety Report 6656805-X (Version None)
Quarter: 2010Q1

REPORT INFORMATION
  Report Type: 
  Country: None (occurrence: None)
  Receive Date: 20100324
  Receipt Date: 20100316
  Transmission Date: 20100710
  Serious: Yes (Other)
  Sender: FDA-Public Use
  Company Number: 008816

PATIENT
  Age: 28 Year
  Sex: Female

DRUGS (1)
  1. PHENTERMINE [Suspect]

REACTIONS (3)
  - CARDIAC VALVE RUPTURE [None]
  - MITRAL VALVE DISEASE [None]
  - TRICUSPID VALVE DISEASE [None]
